FAERS Safety Report 8183735-7 (Version None)
Quarter: 2012Q1

REPORT INFORMATION
  Report Type: 
  Country: None (occurrence: None)
  Receive Date: 20120305
  Receipt Date: 20120224
  Transmission Date: 20120608
  Serious: Yes (Hospitalization, Other)
  Sender: FDA-Public Use
  Company Number: PHHY2012BR016542

PATIENT
  Age: 63 Year
  Sex: Male

DRUGS (3)
  1. ZYBAN [Concomitant]
     Indication: SMOKING CESSATION THERAPY
  2. FORMOTEROL FUMARATE [Suspect]
     Indication: RESPIRATORY FAILURE
     Dosage: UNK
  3. VARENICLINE TARTRATE [Concomitant]
     Indication: SMOKING CESSATION THERAPY

REACTIONS (3)
  - CARDIAC ARREST [None]
  - RESPIRATORY DISORDER [None]
  - INFARCTION [None]
